FAERS Safety Report 5368997-3 (Version None)
Quarter: 2007Q2

REPORT INFORMATION
  Report Type: 
  Country: None (occurrence: None)
  Receive Date: 20070625
  Receipt Date: 20061214
  Transmission Date: 20071010
  Serious: No
  Sender: FDA-Public Use
  Company Number: US-ASTRAZENECA-2006UW23484

PATIENT
  Age: 68 Year
  Sex: Male
  Weight: 108.9 kg

DRUGS (17)
  1. CRESTOR [Suspect]
     Indication: BLOOD CHOLESTEROL INCREASED
     Route: 048
     Dates: start: 20060801
  2. PLETAL [Concomitant]
  3. TERAZOSIN HCL [Concomitant]
  4. DIOVAN [Concomitant]
  5. CALCIUM CHLORIDE [Concomitant]
  6. LASIX [Concomitant]
  7. MULTI-VITAMIN [Concomitant]
  8. FISH OIL [Concomitant]
  9. PRILOSEC [Concomitant]
     Route: 048
  10. ASPIRIN [Concomitant]
  11. FOLIC ACID [Concomitant]
  12. SINGULAIR [Concomitant]
  13. ZYRTEC [Concomitant]
  14. COD LIVER OIL [Concomitant]
  15. VITAMIN E [Concomitant]
  16. ACTOS [Concomitant]
  17. SEREVENT [Concomitant]
     Dosage: 1 PUFF BID PRN

REACTIONS (4)
  - BLOOD GLUCOSE INCREASED [None]
  - FLATULENCE [None]
  - PYREXIA [None]
  - TREMOR [None]
